FAERS Safety Report 6177748-4 (Version None)
Quarter: 2009Q2

REPORT INFORMATION
  Report Type: 
  Country: None (occurrence: None)
  Receive Date: 20090504
  Receipt Date: 20090422
  Transmission Date: 20091009
  Serious: Yes (Hospitalization)
  Sender: FDA-Public Use
  Company Number: FR-PFIZER INC-2009201447

PATIENT

DRUGS (4)
  1. SALAZOPYRIN [Suspect]
     Indication: RHEUMATOID ARTHRITIS
     Dosage: UNK
     Dates: start: 20080101, end: 20081201
  2. METHOTREXATE [Suspect]
     Dosage: UNK
     Dates: end: 20080101
  3. BREXIN [Concomitant]
     Dosage: UNK
  4. INIPOMP [Concomitant]
     Dosage: UNK

REACTIONS (2)
  - LUNG DISORDER [None]
  - RHONCHI [None]
